FAERS Safety Report 9237096 (Version 1)
Quarter: 2013Q2

REPORT INFORMATION
  Report Type: Spontaneous
  Country: DE (occurrence: DE)
  Receive Date: 20130417
  Receipt Date: 20130417
  Transmission Date: 20140414
  Serious: Yes (Life-Threatening)
  Sender: FDA-Public Use
  Company Number: GXKR2013DE001494

PATIENT
  Age: 57 Year
  Sex: Female

DRUGS (1)
  1. ACETYLSALICYLIC ACID [Suspect]
     Indication: CEREBRAL INFARCTION
     Route: 048

REACTIONS (2)
  - Hydrocephalus [Unknown]
  - Cerebellar haemorrhage [Unknown]
